FAERS Safety Report 4852174-6 (Version None)
Quarter: 2005Q4

REPORT INFORMATION
  Report Type: 
  Country: None (occurrence: None)
  Receive Date: 20051212
  Receipt Date: 20051212
  Transmission Date: 20060501
  Serious: Yes (Life-Threatening)
  Sender: FDA-Public Use
  Company Number: None

PATIENT
  Age: 71 Year
  Sex: Female
  Weight: 50.8029 kg

DRUGS (1)
  1. NITROFURANTOIN MACROCRYSTALLINE [Suspect]
     Indication: INCONTINENCE
     Dosage: 100 MGMS BID PO
     Route: 048
     Dates: start: 20051118, end: 20051129

REACTIONS (3)
  - ANASTOMOTIC ULCER [None]
  - PETECHIAE [None]
  - SHOCK [None]
